FAERS Safety Report 8017726 (Version 34)
Quarter: 2015Q3

REPORT INFORMATION
  Report Type: Report from Study
  Country: CA (occurrence: CA)
  Receive Date: 20110630
  Receipt Date: 20150807
  Transmission Date: 20151125
  Serious: Yes (Other)
  Sender: FDA-Public Use
  Company Number: PHHY2009CA35645

PATIENT
  Age: 83 Year
  Sex: Female

DRUGS (9)
  1. SANDOSTATIN LAR DEPOT [Suspect]
     Active Substance: OCTREOTIDE ACETATE
     Dosage: 20 MG, QMO
     Route: 030
  2. DESERIL [Concomitant]
     Indication: PRODUCT USED FOR UNKNOWN INDICATION
     Route: 065
  3. MULTI VITAMIN [Concomitant]
     Active Substance: VITAMINS
     Indication: PRODUCT USED FOR UNKNOWN INDICATION
     Route: 065
  4. SANDOSTATIN LAR DEPOT [Suspect]
     Active Substance: OCTREOTIDE ACETATE
     Indication: CARCINOID SYNDROME
     Dosage: 20 MG, QMO
     Route: 030
     Dates: start: 20090819
  5. SANDOSTATIN LAR DEPOT [Suspect]
     Active Substance: OCTREOTIDE ACETATE
     Dosage: 30 MG, QMO
     Route: 030
  6. ACIDOPHILUS [Concomitant]
     Active Substance: LACTOBACILLUS ACIDOPHILUS
     Indication: PRODUCT USED FOR UNKNOWN INDICATION
     Dosage: UNK
     Route: 065
  7. FLUOXETINE [Concomitant]
     Active Substance: FLUOXETINE\FLUOXETINE HYDROCHLORIDE
     Indication: SOMNOLENCE
     Dosage: 10 MG, QD
     Route: 048
  8. SANDOSTATIN [Suspect]
     Active Substance: OCTREOTIDE ACETATE
     Indication: CARCINOID SYNDROME
     Dosage: 100 UG, TID
     Route: 058
     Dates: start: 20090812, end: 20090826
  9. IMOVANE [Concomitant]
     Active Substance: ZOPICLONE
     Indication: PRODUCT USED FOR UNKNOWN INDICATION
     Route: 065

REACTIONS (28)
  - Osteoporosis [Unknown]
  - Blood pressure diastolic decreased [Unknown]
  - Discomfort [Unknown]
  - Blood calcium decreased [Unknown]
  - Fatigue [Unknown]
  - Musculoskeletal pain [Unknown]
  - Flatulence [Not Recovered/Not Resolved]
  - Frequent bowel movements [Unknown]
  - Injection site swelling [Unknown]
  - Decreased appetite [Unknown]
  - Intervertebral disc compression [Unknown]
  - Diarrhoea [Not Recovered/Not Resolved]
  - Emotional disorder [Unknown]
  - Peripheral swelling [Unknown]
  - Blood pressure increased [Unknown]
  - Arthralgia [Unknown]
  - Movement disorder [Unknown]
  - Heart rate decreased [Unknown]
  - Weight increased [Unknown]
  - Pain in extremity [Unknown]
  - Hearing impaired [Unknown]
  - Weight decreased [Unknown]
  - Asthenia [Unknown]
  - Sciatica [Recovered/Resolved]
  - Faeces discoloured [Unknown]
  - Injection site pain [Unknown]
  - Dyspnoea [Unknown]
  - Back pain [Unknown]

NARRATIVE: CASE EVENT DATE: 2015
